FAERS Safety Report 6555754-5 (Version None)
Quarter: 2010Q1

REPORT INFORMATION
  Report Type: 
  Country: None (occurrence: None)
  Receive Date: 20100125
  Receipt Date: 20100113
  Transmission Date: 20100710
  Serious: Yes (Hospitalization)
  Sender: FDA-Public Use
  Company Number: 2009AL006669

PATIENT
  Age: 71 Year
  Sex: Female

DRUGS (8)
  1. NAPROXEN [Suspect]
     Indication: OSTEOARTHRITIS
     Dosage: 250 MG; BID; PO
     Route: 048
  2. NIFEDIPINE [Suspect]
     Indication: HYPERTENSION
     Dosage: 30 MG; QD; PO
     Route: 048
  3. DETRUSITOL [Concomitant]
  4. FUROSEMIDE [Concomitant]
  5. LISINOPRIL [Concomitant]
  6. DOXYCYCLINE [Concomitant]
  7. LEVOTHYROXINE SODIUM [Concomitant]
  8. METHYLTESTOSTERONE [Concomitant]

REACTIONS (7)
  - ANAEMIA [None]
  - EOSINOPHILIA [None]
  - GASTRIC ULCER [None]
  - NEUTROPENIA [None]
  - OEDEMA PERIPHERAL [None]
  - RENAL IMPAIRMENT [None]
  - THROMBOCYTOPENIA [None]
